FAERS Safety Report 6190107-3 (Version None)
Quarter: 2009Q2

REPORT INFORMATION
  Report Type: 
  Country: None (occurrence: None)
  Receive Date: 20090514
  Receipt Date: 20090506
  Transmission Date: 20091009
  Serious: Yes (Hospitalization)
  Sender: FDA-Public Use
  Company Number: RO-JNJFOC-20090400904

PATIENT
  Sex: Male
  Weight: 57 kg

DRUGS (5)
  1. PREZISTA [Suspect]
     Route: 048
  2. PREZISTA [Suspect]
     Indication: HIV INFECTION
     Dosage: DOSE: 300MG TABLETS X 2
     Route: 048
  3. KIVEXA [Suspect]
     Indication: HIV INFECTION
  4. RITONAVIR [Concomitant]
     Route: 048
  5. RITONAVIR [Concomitant]
     Indication: HIV INFECTION
     Route: 048

REACTIONS (5)
  - BONE PAIN [None]
  - MYALGIA [None]
  - OEDEMA PERIPHERAL [None]
  - PYREXIA [None]
  - RASH [None]
